FAERS Safety Report 14239417 (Version 1)
Quarter: 2017Q4

REPORT INFORMATION
  Report Type: Spontaneous
  Country: JP (occurrence: JP)
  Receive Date: 20171130
  Receipt Date: 20171130
  Transmission Date: 20180321
  Serious: Yes (Other)
  Sender: FDA-Public Use
  Company Number: JP-BAYER-2017-208769

PATIENT
  Age: 77 Year
  Sex: Male

DRUGS (5)
  1. BAYASPIRIN 100 MG [Suspect]
     Active Substance: ASPIRIN
     Indication: ANTIPLATELET THERAPY
     Dosage: UNK
     Route: 048
     Dates: start: 2014
  2. ALLOPURINOL. [Suspect]
     Active Substance: ALLOPURINOL
  3. PRASUGREL. [Concomitant]
     Active Substance: PRASUGREL
     Dosage: UNK
     Dates: start: 20170816
  4. BAYASPIRIN 100 MG [Interacting]
     Active Substance: ASPIRIN
     Indication: ANTIPLATELET THERAPY
     Dosage: UNK
     Route: 048
     Dates: start: 20170816
  5. PLAVIX [Interacting]
     Active Substance: CLOPIDOGREL BISULFATE

REACTIONS (3)
  - Haemorrhage [Recovered/Resolved]
  - Labelled drug-drug interaction medication error [None]
  - Drug administration error [None]

NARRATIVE: CASE EVENT DATE: 20141101
